FAERS Safety Report 7412284-6 (Version None)
Quarter: 2011Q2

REPORT INFORMATION
  Report Type: 
  Country: None (occurrence: None)
  Receive Date: 20110413
  Receipt Date: 20110404
  Transmission Date: 20111010
  Serious: Yes (Other)
  Sender: FDA-Public Use
  Company Number: ES-ASTRAZENECA-2011SE18992

PATIENT
  Age: 45 Year
  Sex: Female

DRUGS (3)
  1. SINTROM [Interacting]
     Indication: DEEP VEIN THROMBOSIS
     Route: 048
     Dates: start: 20100601
  2. CRESTOR [Suspect]
     Indication: HYPERCHOLESTEROLAEMIA
     Route: 048
     Dates: start: 20100101, end: 20100129
  3. CRESTOR [Interacting]
     Route: 048
     Dates: start: 20100601, end: 20110228

REACTIONS (5)
  - MYALGIA [None]
  - PULMONARY THROMBOSIS [None]
  - DEEP VEIN THROMBOSIS [None]
  - DRUG INTERACTION [None]
  - INTERNATIONAL NORMALISED RATIO INCREASED [None]
